FAERS Safety Report 13550425 (Version 2)
Quarter: 2017Q2

REPORT INFORMATION
  Report Type: Spontaneous
  Country: JP (occurrence: JP)
  Receive Date: 20170516
  Receipt Date: 20170525
  Transmission Date: 20170830
  Serious: Yes (Other)
  Sender: FDA-Public Use
  Company Number: PHJP2017JP015799

PATIENT
  Age: 65 Year
  Sex: Female

DRUGS (2)
  1. PAZOPANIB [Suspect]
     Active Substance: PAZOPANIB
     Dosage: 800 MG, QD
     Route: 065
  2. PAZOPANIB [Suspect]
     Active Substance: PAZOPANIB
     Indication: SOFT TISSUE SARCOMA
     Dosage: 800 MG, QD
     Route: 065
     Dates: start: 201304

REACTIONS (7)
  - Soft tissue sarcoma [Unknown]
  - Malaise [Unknown]
  - Bile duct stone [Recovered/Resolved]
  - Decreased appetite [Unknown]
  - Malignant neoplasm progression [Unknown]
  - Cholecystitis [Recovered/Resolved]
  - Hepatic function abnormal [Unknown]
